FAERS Safety Report 11642437 (Version 1)
Quarter: 2015Q4

REPORT INFORMATION
  Report Type: Spontaneous
  Country: None (occurrence: US)
  Receive Date: 20151019
  Receipt Date: 20151019
  Transmission Date: 20160304
  Serious: No
  Sender: FDA-Public Use
  Company Number: US-AMPHASTAR PHARMACEUTICALS, INC.-1043161

PATIENT
  Sex: Male

DRUGS (3)
  1. BLOOD PRESSURE MEDICATION (UNKNOWN) [Concomitant]
  2. ASA [Concomitant]
     Active Substance: ASPIRIN
  3. ENOXAPARIN SODIUM. [Suspect]
     Active Substance: ENOXAPARIN SODIUM
     Route: 058
     Dates: start: 20140913

REACTIONS (2)
  - Headache [Unknown]
  - Nervousness [Unknown]

NARRATIVE: CASE EVENT DATE: 20140915
